FAERS Safety Report 19153225 (Version 1)
Quarter: 2021Q2

REPORT INFORMATION
  Report Type: Spontaneous
  Country: IT (occurrence: IT)
  Receive Date: 20210419
  Receipt Date: 20210419
  Transmission Date: 20210717
  Serious: Yes (Life-Threatening)
  Sender: FDA-Public Use
  Company Number: IT-PFIZER INC-2021395425

PATIENT
  Sex: Male

DRUGS (1)
  1. DOPAMINE HCL [Suspect]
     Active Substance: DOPAMINE HYDROCHLORIDE
     Indication: HYPOTENSION
     Dosage: UNK

REACTIONS (1)
  - Neonatal respiratory distress [Recovered/Resolved]
